FAERS Safety Report 9815084 (Version 1)
Quarter: 2014Q1

REPORT INFORMATION
  Report Type: Report from Study
  Country: KR (occurrence: KR)
  Receive Date: 20140114
  Receipt Date: 20140114
  Transmission Date: 20141002
  Serious: Yes (Hospitalization)
  Sender: FDA-Public Use
  Company Number: KR-009507513-1401KOR002352

PATIENT
  Age: 56 Year
  Sex: Male
  Weight: 67.4 kg

DRUGS (18)
  1. VORINOSTAT [Suspect]
     Indication: GASTRIC CANCER
     Dosage: CYCLE 1: 400 MG, QD (STRENGTH 400 MG)
     Route: 048
     Dates: start: 20131108, end: 201311
  2. VORINOSTAT [Suspect]
     Dosage: CYCLE 2: 400 MG, QD (STRENGTH 400 MG)
     Route: 048
     Dates: start: 2013, end: 2013
  3. VORINOSTAT [Suspect]
     Dosage: CYCLE 3: 400 MG, QD (STRENGTH 400 MG)
     Route: 048
     Dates: start: 20131220, end: 20140102
  4. CISPLATIN [Suspect]
     Indication: GASTRIC CANCER
     Dosage: CYCLE 1: 104 MG, QD (STRENGTH 60 MG/M2)
     Route: 042
     Dates: start: 20131108, end: 201311
  5. CISPLATIN [Suspect]
     Dosage: CYCLE 2: 104 MG, QD (STRENGTH 60 MG/M2)
     Route: 042
     Dates: start: 2013, end: 2013
  6. CISPLATIN [Suspect]
     Dosage: CYCLE 3: 104 MG, QD (STRENGTH 60 MG/M2)
     Route: 042
     Dates: start: 20131220, end: 20140102
  7. CAPECITABINE [Suspect]
     Indication: GASTRIC CANCER
     Dosage: CYCLE 1: 1750 MG DAILY, BID (STRENGTH 1000 MG/M2)
     Route: 048
     Dates: start: 20131108, end: 201311
  8. CAPECITABINE [Suspect]
     Dosage: CYCLE 2: 1750 MG DAILY, BID (STRENGTH 1000 MG/M2)
     Route: 048
     Dates: start: 2013, end: 2013
  9. CAPECITABINE [Suspect]
     Dosage: CYCLE 3: 1750 MG DAILY, BID (STRENGTH 1000 MG/M2)
     Route: 048
     Dates: start: 20131220, end: 20140102
  10. MEGESTROL ACETATE [Concomitant]
     Indication: PROPHYLAXIS
     Dosage: 20 ML DAILY
     Route: 048
     Dates: start: 20131130
  11. RAMOSETRON [Concomitant]
     Indication: PROPHYLAXIS
     Dosage: 0.3 MG DAILY
     Route: 042
     Dates: start: 20131108, end: 20131220
  12. DEXAMETHASONE [Concomitant]
     Indication: PROPHYLAXIS
     Dosage: 10 MG DAILY
     Route: 042
     Dates: start: 20131108, end: 20131220
  13. DEXAMETHASONE [Concomitant]
     Indication: PROPHYLAXIS
     Dosage: 8 MG DAILY
     Route: 048
     Dates: start: 20131109, end: 20131223
  14. RANITIDINE [Concomitant]
     Indication: PROPHYLAXIS
     Dosage: 300 MG DAILY
     Route: 048
     Dates: start: 20131109, end: 20131223
  15. APREPITANT [Concomitant]
     Indication: PROPHYLAXIS
     Dosage: UNK, 125 MG DAILY
     Route: 048
     Dates: start: 20131108, end: 20131220
  16. APREPITANT [Concomitant]
     Dosage: UNK, 80 MG DAILY
     Route: 048
     Dates: start: 20131109, end: 20131222
  17. FUROSEMIDE [Concomitant]
     Indication: PROPHYLAXIS
     Dosage: UNK, 20 MG DAILY
     Route: 042
     Dates: start: 20131108, end: 20131220
  18. SODIUM BICARBONATE [Concomitant]
     Indication: STOMATITIS
     Dosage: GARGLE
     Route: 048
     Dates: start: 20140101

REACTIONS (3)
  - Abdominal pain [Recovered/Resolved]
  - Stomatitis [Not Recovered/Not Resolved]
  - Pyrexia [Recovered/Resolved]
